FAERS Safety Report 6681189-0 (Version None)
Quarter: 2010Q2

REPORT INFORMATION
  Report Type: 
  Country: None (occurrence: None)
  Receive Date: 20100414
  Receipt Date: 20100412
  Transmission Date: 20101027
  Serious: Yes (Other)
  Sender: FDA-Public Use
  Company Number: US-ELI_LILLY_AND_COMPANY-US201001004751

PATIENT
  Sex: Male
  Weight: 129.25 kg

DRUGS (9)
  1. BYETTA [Suspect]
     Dosage: 5 UG, 2/D
     Route: 058
     Dates: start: 20060326
  2. BYETTA [Suspect]
     Dosage: 10 UG, UNK
     Route: 058
     Dates: end: 20080311
  3. FUROSEMIDE [Concomitant]
     Indication: HYPERTENSION
     Dosage: 20 MG, DAILY (1/D)
  4. LISINOPRIL [Concomitant]
     Indication: HYPERTENSION
     Dosage: 40 MG, DAILY (1/D)
  5. ROSIGLITAZONE MALEATE [Concomitant]
     Indication: DIABETES MELLITUS
     Dosage: 4 MG, DAILY (1/D)
  6. PRAVASTATIN [Concomitant]
     Indication: HYPERCHOLESTEROLAEMIA
     Dosage: 40 MG, DAILY (1/D)
  7. GLIMEPIRIDE [Concomitant]
     Indication: DIABETES MELLITUS
     Dosage: 2 MG, DAILY (1/D)
  8. ATENOLOL [Concomitant]
     Dosage: 50 MG, DAILY (1/D)
  9. METFORMIN HCL [Concomitant]
     Dosage: 1000 MG, 2/D

REACTIONS (1)
  - PANCREATITIS ACUTE [None]
